FAERS Safety Report 5158075-0 (Version None)
Quarter: 2006Q4

REPORT INFORMATION
  Report Type: 
  Country: None (occurrence: None)
  Receive Date: 20061113
  Receipt Date: 20061101
  Transmission Date: 20070319
  Serious: Yes (Other)
  Sender: FDA-Public Use
  Company Number: 200610351BBE

PATIENT
  Age: 64 Year
  Sex: Male

DRUGS (11)
  1. GAMUNEX [Suspect]
     Indication: GUILLAIN-BARRE SYNDROME
     Dosage: SEE IMAGE, INTRAVENOUS
     Route: 042
     Dates: start: 20060920
  2. GAMUNEX [Suspect]
     Indication: GUILLAIN-BARRE SYNDROME
     Dosage: SEE IMAGE, INTRAVENOUS
     Route: 042
     Dates: start: 20060921
  3. GAMUNEX [Suspect]
     Indication: GUILLAIN-BARRE SYNDROME
     Dosage: SEE IMAGE, INTRAVENOUS
     Route: 042
     Dates: start: 20060922
  4. GAMUNEX [Suspect]
  5. CIPRO [Concomitant]
  6. COZAAR [Concomitant]
  7. LIPITOR [Concomitant]
  8. ASPIRIN [Concomitant]
  9. COLACE [Concomitant]
  10. SENOKOT [Concomitant]
  11. FLOMAX [Concomitant]

REACTIONS (1)
  - NEUTROPENIA [None]
